FAERS Safety Report 6904554-2 (Version None)
Quarter: 2010Q3

REPORT INFORMATION
  Report Type: 
  Country: None (occurrence: None)
  Receive Date: 20100804
  Receipt Date: 20090614
  Transmission Date: 20110219
  Serious: No
  Sender: FDA-Public Use
  Company Number: US-PFIZER INC-2009227705

PATIENT
  Sex: Female

DRUGS (3)
  1. LYRICA [Suspect]
     Indication: NERVE INJURY
     Dosage: 150 MG, 2X/DAY
     Dates: start: 20090401
  2. LYRICA [Suspect]
     Indication: NEURALGIA
  3. VICODIN [Concomitant]

REACTIONS (4)
  - ARTHRALGIA [None]
  - DISTURBANCE IN ATTENTION [None]
  - MYALGIA [None]
  - VISION BLURRED [None]
